FAERS Safety Report 5812517-3 (Version None)
Quarter: 2008Q3

REPORT INFORMATION
  Report Type: 
  Country: None (occurrence: None)
  Receive Date: 20080714
  Receipt Date: 20080714
  Transmission Date: 20090109
  Serious: Yes (Other)
  Sender: FDA-Public Use
  Company Number: None

PATIENT
  Age: 50 Year
  Sex: Female
  Weight: 81.6475 kg

DRUGS (1)
  1. CLARITIN-D [Suspect]
     Indication: MULTIPLE ALLERGIES
     Dosage: 1 TABLET TWICE DAILY PO
     Route: 048
     Dates: start: 20080604, end: 20080605

REACTIONS (5)
  - FEAR [None]
  - HEART RATE DECREASED [None]
  - IMPAIRED WORK ABILITY [None]
  - INSOMNIA [None]
  - PALPITATIONS [None]
